FAERS Safety Report 19803638 (Version 2)
Quarter: 2022Q2

REPORT INFORMATION
  Report Type: Report from Study
  Country: TR (occurrence: TR)
  Receive Date: 20210908
  Receipt Date: 20220620
  Transmission Date: 20220721
  Serious: Yes (Death, Other)
  Sender: FDA-Public Use
  Company Number: TR-PFIZER INC-202101140567

PATIENT

DRUGS (4)
  1. EPIRUBICIN HYDROCHLORIDE [Suspect]
     Active Substance: EPIRUBICIN HYDROCHLORIDE
     Indication: Osteosarcoma
     Dosage: 90 MG/M2, CYCLIC (1ST DAY)
  2. CISPLATIN [Suspect]
     Active Substance: CISPLATIN
     Indication: Osteosarcoma
     Dosage: 100 MG/M2, CYCLIC (4TH DAY)
  3. IFOSFAMIDE\MESNA [Suspect]
     Active Substance: IFOSFAMIDE\MESNA
     Indication: Osteosarcoma
     Dosage: 1.8 G/M2, CYCLIC (1ST DAY, 2ND DAY, 3RD DAY)
  4. GRANULOCYTE COLONY-STIMULATING FACTOR NOS [Concomitant]
     Active Substance: GRANULOCYTE COLONY-STIMULATING FACTOR NOS
     Dosage: UNK

REACTIONS (6)
  - Sepsis [Fatal]
  - Renal tubular disorder [Unknown]
  - Thrombocytopenia [Unknown]
  - Anaemia [Unknown]
  - Neutropenia [Unknown]
  - Febrile neutropenia [Unknown]
